FAERS Safety Report 7374055-9 (Version None)
Quarter: 2011Q1

REPORT INFORMATION
  Report Type: 
  Country: None (occurrence: None)
  Receive Date: 20110315
  Receipt Date: 20110225
  Transmission Date: 20110831
  Serious: Yes (Hospitalization)
  Sender: FDA-Public Use
  Company Number: 014593

PATIENT
  Sex: Male

DRUGS (2)
  1. PRORANON (PRANOPROFEN) [Concomitant]
  2. MACUGEN (PEGAPTANIB SODIUM) SOLUTION FOR INJECTION [Suspect]
     Indication: MACULAR DEGENERATION
     Dosage: 10.3MG, INTRAOCULAR
     Route: 031
     Dates: start: 20100129, end: 20100319

REACTIONS (1)
  - DIABETES MELLITUS [None]
